FAERS Safety Report 9630063 (Version 5)
Quarter: 2014Q2

REPORT INFORMATION
  Report Type: Spontaneous
  Country: US (occurrence: US)
  Receive Date: 20131017
  Receipt Date: 20140407
  Transmission Date: 20141212
  Serious: Yes (Hospitalization, Other)
  Sender: FDA-Public Use
  Company Number: US-BAXTER-2013BAX039471

PATIENT
  Age: 69 Year
  Sex: Male

DRUGS (5)
  1. DIANEAL LOW CALCIUM [Suspect]
     Indication: PERITONEAL DIALYSIS
     Route: 033
     Dates: start: 2011, end: 201403
  2. DIANEAL LOW CALCIUM [Suspect]
     Indication: PERITONEAL DIALYSIS
     Route: 033
     Dates: start: 2011, end: 201403
  3. COREG [Concomitant]
     Indication: HYPERTENSION
     Route: 065
  4. COREG [Concomitant]
     Indication: CARDIAC FAILURE
  5. SYNTHROID [Concomitant]
     Indication: HYPOTHYROIDISM

REACTIONS (3)
  - Bile duct stone [Unknown]
  - Gallbladder disorder [Unknown]
  - Peritonitis bacterial [Not Recovered/Not Resolved]
